FAERS Safety Report 6694983-7 (Version None)
Quarter: 2010Q2

REPORT INFORMATION
  Report Type: 
  Country: None (occurrence: None)
  Receive Date: 20100421
  Receipt Date: 20100407
  Transmission Date: 20101027
  Serious: Yes (Hospitalization)
  Sender: FDA-Public Use
  Company Number: 010134

PATIENT
  Age: 61 Year
  Sex: Female

DRUGS (4)
  1. LEVETIRACETAM [Suspect]
     Indication: TARDIVE DYSKINESIA
     Dosage: (1000 MG)
     Dates: start: 20050101, end: 20050101
  2. RISPERIDONE [Concomitant]
  3. BIPERIDEN HYDROCHLORIDE TAB [Concomitant]
  4. QUETIAPINE [Concomitant]

REACTIONS (7)
  - ANXIETY [None]
  - HOMICIDAL IDEATION [None]
  - INSOMNIA [None]
  - MOOD ALTERED [None]
  - OFF LABEL USE [None]
  - PERSECUTORY DELUSION [None]
  - SELF-INJURIOUS IDEATION [None]
